FAERS Safety Report 8116147-2 (Version None)
Quarter: 2012Q1

REPORT INFORMATION
  Report Type: 
  Country: None (occurrence: None)
  Receive Date: 20120201
  Receipt Date: 20120119
  Transmission Date: 20120608
  Serious: Yes (Hospitalization)
  Sender: FDA-Public Use
  Company Number: 2012SP003815

PATIENT
  Age: 40 Year
  Sex: Female

DRUGS (4)
  1. IMA950 (MULTI-PEPTIDE VACCINE) [Concomitant]
  2. GM-CSF (OTHER MFR) [Concomitant]
  3. TEMOZOLOMIDE [Concomitant]
  4. DEXAMETHASONE TAB [Suspect]
     Indication: PRODUCT USED FOR UNKNOWN INDICATION

REACTIONS (1)
  - ORAL CANDIDIASIS [None]
